FAERS Safety Report 10348969 (Version 1)
Quarter: 2014Q3

REPORT INFORMATION
  Report Type: Spontaneous
  Country: US (occurrence: US)
  Receive Date: 20140729
  Receipt Date: 20140729
  Transmission Date: 20150326
  Serious: No
  Sender: FDA-Public Use
  Company Number: US-BAUSCH-BL-2014-002237

PATIENT
  Age: 62 Year
  Sex: Male

DRUGS (2)
  1. OPCON-A [Suspect]
     Active Substance: NAPHAZOLINE HYDROCHLORIDE\PHENIRAMINE MALEATE
     Indication: HYPERSENSITIVITY
     Dosage: 2 TO 3 TIMES PER DAY AS NEEDED
  2. ZYRTEC [Concomitant]
     Active Substance: CETIRIZINE HYDROCHLORIDE
     Indication: PRODUCT USED FOR UNKNOWN INDICATION

REACTIONS (3)
  - No adverse event [Unknown]
  - Intentional product misuse [Unknown]
  - Therapeutic response changed [Unknown]

NARRATIVE: CASE EVENT DATE: 2014
